FAERS Safety Report 4958248-3 (Version None)
Quarter: 2006Q1

REPORT INFORMATION
  Report Type: 
  Country: None (occurrence: None)
  Receive Date: 20060330
  Receipt Date: 20060324
  Transmission Date: 20060701
  Serious: Yes (Hospitalization)
  Sender: FDA-Public Use
  Company Number: FR-GLAXOSMITHKLINE-B0417441A

PATIENT
  Age: 84 Year
  Sex: Female

DRUGS (13)
  1. FRAXODI [Suspect]
     Dosage: .6ML PER DAY
     Route: 058
     Dates: start: 20060307, end: 20060313
  2. ARIXTRA [Suspect]
     Dosage: 2.5MG PER DAY
     Route: 058
     Dates: start: 20060314, end: 20060317
  3. SECTRAL [Concomitant]
     Dosage: 200MG TWICE PER DAY
  4. DIGOXIN [Concomitant]
     Dosage: 1UNIT PER DAY
  5. MANIDIPINE [Concomitant]
     Dosage: 1TAB AT NIGHT
     Route: 048
  6. COKENZEN [Concomitant]
     Dosage: 1TAB IN THE MORNING
     Route: 048
  7. CELEBREX [Concomitant]
     Dates: end: 20060311
  8. OMEPRAZOLE [Concomitant]
  9. LAMALINE [Concomitant]
  10. ATHYMIL [Concomitant]
     Dates: end: 20060306
  11. PREVISCAN [Concomitant]
     Dates: start: 20050101, end: 20060306
  12. NITROGLYCERIN [Concomitant]
     Indication: CHEST PAIN
     Dates: start: 20060314, end: 20060314
  13. AUTOTRANSFUSION [Concomitant]
     Dosage: 240ML PER DAY
     Dates: start: 20060314, end: 20060314

REACTIONS (9)
  - ANAEMIA [None]
  - CERVIX DISORDER [None]
  - DEEP VEIN THROMBOSIS [None]
  - HEPARIN-INDUCED THROMBOCYTOPENIA [None]
  - HYPONATRAEMIA [None]
  - MELAENA [None]
  - PULMONARY EMBOLISM [None]
  - RENAL INFARCT [None]
  - URINE OUTPUT DECREASED [None]
